FAERS Safety Report 11200855 (Version 2)
Quarter: 2015Q3

REPORT INFORMATION
  Report Type: Spontaneous
  Country: CA (occurrence: CA)
  Receive Date: 20150618
  Receipt Date: 20150915
  Transmission Date: 20151125
  Serious: Yes (Other)
  Sender: FDA-Public Use
  Company Number: CA-009507513-1506CAN004974

PATIENT
  Sex: Male

DRUGS (10)
  1. TEMODAL [Suspect]
     Active Substance: TEMOZOLOMIDE
     Dosage: 225 MG, QD X 5 DAYS CYCLE PER MONTH
     Route: 048
     Dates: start: 201505
  2. TEMODAL [Suspect]
     Active Substance: TEMOZOLOMIDE
     Dosage: 225 MG, QD X 5 DAYS CYCLE PER MONTH
     Route: 048
     Dates: start: 201505
  3. TEMODAL [Suspect]
     Active Substance: TEMOZOLOMIDE
     Indication: OLIGOASTROCYTOMA
     Dosage: 225 MG, QD X 5 DAYS CYCLE PER MONTH
     Route: 048
     Dates: start: 20141217, end: 2015
  4. TEMODAL [Suspect]
     Active Substance: TEMOZOLOMIDE
     Indication: OLIGOASTROCYTOMA
     Dosage: 225 MG, QD X 5 DAYS CYCLE PER MONTH
     Route: 048
     Dates: start: 20141217, end: 2015
  5. TEMODAL [Suspect]
     Active Substance: TEMOZOLOMIDE
     Indication: OLIGOASTROCYTOMA
     Dosage: 225 MG, QD X 5 DAYS CYCLE PER MONTH
     Route: 048
     Dates: start: 20141217, end: 2015
  6. TEMODAL [Suspect]
     Active Substance: TEMOZOLOMIDE
     Dosage: 225 MG, QD X 5 DAYS CYCLE PER MONTH
     Route: 048
     Dates: start: 201505
  7. TEMODAL [Suspect]
     Active Substance: TEMOZOLOMIDE
     Dosage: 225 MG, QD X 5 DAYS CYCLE PER MONTH
     Route: 048
     Dates: start: 201505
  8. TEMODAL [Suspect]
     Active Substance: TEMOZOLOMIDE
     Indication: OLIGOASTROCYTOMA
     Dosage: 225 MG, QD X 5 DAYS CYCLE PER MONTH
     Route: 048
     Dates: start: 20141217, end: 2015
  9. TEMODAL [Suspect]
     Active Substance: TEMOZOLOMIDE
     Dosage: 225 MG, QD X 5 DAYS CYCLE PER MONTH
     Route: 048
     Dates: start: 201505
  10. TEMODAL [Suspect]
     Active Substance: TEMOZOLOMIDE
     Indication: OLIGOASTROCYTOMA
     Dosage: 225 MG, QD X 5 DAYS CYCLE PER MONTH
     Route: 048
     Dates: start: 20141217, end: 2015

REACTIONS (5)
  - Anal fistula [Unknown]
  - Drug dose omission [Recovered/Resolved]
  - Rectal abscess [Unknown]
  - Neoplasm recurrence [Not Recovered/Not Resolved]
  - Product taste abnormal [Unknown]

NARRATIVE: CASE EVENT DATE: 2015
